FAERS Safety Report 7605166-8 (Version None)
Quarter: 2011Q3

REPORT INFORMATION
  Report Type: 
  Country: None (occurrence: None)
  Receive Date: 20110713
  Receipt Date: 20110627
  Transmission Date: 20111222
  Serious: Yes (Life-Threatening, Hospitalization, Other)
  Sender: FDA-Public Use
  Company Number: US-BAYER-2011-036840

PATIENT
  Sex: Male
  Weight: 60 kg

DRUGS (5)
  1. SODIUM FLUORIDE [Concomitant]
     Dosage: 1 DF, UNK
     Dates: start: 20110411
  2. VIDAZA [Concomitant]
  3. CHLORHEXIDINE GLUCONATE [Concomitant]
     Dosage: 473 ML, UNK
     Dates: start: 20110411
  4. SORAFENIB (RAF KINASE INHIBITOR) [Suspect]
     Indication: TONGUE NEOPLASM MALIGNANT STAGE UNSPECIFIED
     Dosage: 400 MG, DAILY
     Route: 048
     Dates: start: 20100616, end: 20110211
  5. SORAFENIB (RAF KINASE INHIBITOR) [Suspect]
     Indication: TONSIL CANCER

REACTIONS (6)
  - CARDIO-RESPIRATORY ARREST [None]
  - CARDIOGENIC SHOCK [None]
  - MYOCARDIAL INFARCTION [None]
  - RESPIRATORY FAILURE [None]
  - PNEUMONIA KLEBSIELLA [None]
  - PULMONARY OEDEMA [None]
